FAERS Safety Report 8835550 (Version 1)
Quarter: 2012Q4

REPORT INFORMATION
  Report Type: 
  Country: FR (occurrence: FR)
  Receive Date: 20121011
  Receipt Date: 20121011
  Transmission Date: 20130627
  Serious: Yes (Hospitalization)
  Sender: FDA-Public Use
  Company Number: FR-ABBOTT-12P-056-0991710-00

PATIENT
  Age: 55 Year
  Sex: Female

DRUGS (1)
  1. HUMIRA [Suspect]
     Indication: CROHN^S DISEASE
     Dates: start: 201110

REACTIONS (5)
  - Dysaesthesia [Unknown]
  - C-reactive protein increased [Unknown]
  - Arthralgia [Unknown]
  - Oedema peripheral [Unknown]
  - Paraesthesia [Unknown]
